FAERS Safety Report 9442193 (Version 1)
Quarter: 2013Q3

REPORT INFORMATION
  Report Type: Spontaneous
  Country: US (occurrence: None)
  Receive Date: 20130805
  Receipt Date: 20130805
  Transmission Date: 20140515
  Serious: Yes (Hospitalization)
  Sender: FDA-Public Use
  Company Number: None

PATIENT
  Age: 15 Year
  Sex: Male
  Weight: 51.8 kg

DRUGS (7)
  1. CYCLOPHOSPHAMIDE [Suspect]
     Dates: start: 20130726
  2. CYTARABINE [Suspect]
     Route: 038
     Dates: start: 20130725
  3. DOXORUBICIN HYDROCHLORIDE [Suspect]
     Dates: start: 20130725
  4. HYDROCORTISONE [Concomitant]
     Route: 038
     Dates: start: 20130725
  5. METHOTREXATE [Suspect]
     Route: 038
     Dates: start: 20130725
  6. PREDNISONE [Suspect]
     Dates: start: 20130801
  7. VINCRISTINE SULFATE [Suspect]
     Dates: start: 20130724

REACTIONS (8)
  - Pain [None]
  - Oral pain [None]
  - Pain in extremity [None]
  - Erythema [None]
  - Abdominal pain [None]
  - Neutrophil count decreased [None]
  - Hypotension [None]
  - Diarrhoea [None]
